FAERS Safety Report 12640808 (Version 1)
Quarter: 2016Q3

REPORT INFORMATION
  Report Type: Spontaneous
  Country: US (occurrence: US)
  Receive Date: 20160810
  Receipt Date: 20160810
  Transmission Date: 20161109
  Serious: No
  Sender: FDA-Public Use
  Company Number: US-BEH-2016072098

PATIENT
  Sex: Female
  Weight: 31.75 kg

DRUGS (30)
  1. CLONAZEPAM. [Concomitant]
     Active Substance: CLONAZEPAM
  2. TOPIRAMATE. [Concomitant]
     Active Substance: TOPIRAMATE
  3. ADVAIR HFA [Concomitant]
     Active Substance: FLUTICASONE PROPIONATE\SALMETEROL XINAFOATE
  4. DIASTAT ACUDIAL [Concomitant]
     Active Substance: DIAZEPAM
  5. GLYCOLAX [Concomitant]
     Active Substance: POLYETHYLENE GLYCOL 3350
  6. INTUNIV [Concomitant]
     Active Substance: GUANFACINE HYDROCHLORIDE
  7. PREDNISONE. [Concomitant]
     Active Substance: PREDNISONE
  8. GABAPENTIN. [Concomitant]
     Active Substance: GABAPENTIN
  9. CLARITIN [Concomitant]
     Active Substance: LORATADINE
  10. LIDOCAINE. [Concomitant]
     Active Substance: LIDOCAINE
  11. PREVACID [Concomitant]
     Active Substance: LANSOPRAZOLE
  12. ALBUTEROL                          /00139501/ [Concomitant]
     Active Substance: ALBUTEROL
  13. HIZENTRA [Suspect]
     Active Substance: HUMAN IMMUNOGLOBULIN G
     Dosage: 5 G, QW
     Route: 058
     Dates: start: 20140507
  14. AMITRIPTYLINE [Concomitant]
     Active Substance: AMITRIPTYLINE
  15. NASONEX [Concomitant]
     Active Substance: MOMETASONE FUROATE
  16. VITAMIN E                          /00110501/ [Concomitant]
     Active Substance: TOCOPHEROL
  17. PATANASE [Concomitant]
     Active Substance: OLOPATADINE HYDROCHLORIDE
  18. DIPHENHYDRAMINE. [Concomitant]
     Active Substance: DIPHENHYDRAMINE
  19. EPIPEN [Concomitant]
     Active Substance: EPINEPHRINE
  20. BANZEL [Concomitant]
     Active Substance: RUFINAMIDE
  21. IRON [Concomitant]
     Active Substance: IRON
  22. HIZENTRA [Suspect]
     Active Substance: HUMAN IMMUNOGLOBULIN G
     Dosage: UNK
     Route: 058
  23. SINGULAIR [Concomitant]
     Active Substance: MONTELUKAST SODIUM
  24. DEPO-PROVERA [Concomitant]
     Active Substance: MEDROXYPROGESTERONE ACETATE
  25. VITAMIN C [Concomitant]
     Active Substance: ASCORBIC ACID
  26. CHILDRENS TYLENOL [Concomitant]
     Active Substance: ACETAMINOPHEN
  27. FLONASE [Concomitant]
     Active Substance: FLUTICASONE PROPIONATE
  28. SENOKOT-S [Concomitant]
     Active Substance: DOCUSATE SODIUM\SENNOSIDES
  29. HIZENTRA [Suspect]
     Active Substance: HUMAN IMMUNOGLOBULIN G
     Indication: SELECTIVE IGG SUBCLASS DEFICIENCY
     Route: 058
  30. CULTURELLE FOR KIDS                /03562201/ [Concomitant]

REACTIONS (2)
  - Conjunctivitis [Unknown]
  - Sinusitis [Unknown]
